FAERS Safety Report 7333529-7 (Version None)
Quarter: 2011Q1

REPORT INFORMATION
  Report Type: 
  Country: None (occurrence: None)
  Receive Date: 20110304
  Receipt Date: 20110223
  Transmission Date: 20110831
  Serious: Yes (Other)
  Sender: FDA-Public Use
  Company Number: US-BRISTOL-MYERS SQUIBB COMPANY-15570542

PATIENT
  Age: 56 Year
  Sex: Male

DRUGS (7)
  1. GLICLAZIDE [Suspect]
     Indication: TYPE 2 DIABETES MELLITUS
     Dosage: ALSO TAKEN AS CONMED 480MG FROM 10JUN10-ONG
     Route: 048
     Dates: start: 20100610
  2. PIOGLITAZONE HCL [Concomitant]
     Dates: end: 20090821
  3. GLIMEPIRIDE [Concomitant]
     Dates: end: 20090821
  4. BLINDED: SAXAGLIPTIN [Suspect]
     Indication: TYPE 2 DIABETES MELLITUS
     Route: 048
     Dates: start: 20101207
  5. METFORMIN HCL [Suspect]
     Indication: TYPE 2 DIABETES MELLITUS
     Dosage: 750MG UNK-21AUG09 3000MG 10JUN10-ONG ALSO TAKEN AS CONMED
     Route: 048
     Dates: start: 20100610
  6. GLIBENCLAMIDE [Concomitant]
     Dosage: 25MG TILL 29JUL06,24SEP09 30MG TILL 10JUN10
     Dates: end: 20100610
  7. BLINDED: PLACEBO [Suspect]
     Indication: TYPE 2 DIABETES MELLITUS
     Route: 048
     Dates: start: 20101207

REACTIONS (2)
  - HERPES VIRUS INFECTION [None]
  - RASH MACULOVESICULAR [None]
